APPROVED DRUG PRODUCT: LEUCOVORIN CALCIUM PRESERVATIVE FREE
Active Ingredient: LEUCOVORIN CALCIUM
Strength: EQ 500MG BASE/50ML (EQ 10MG BASE/ML)
Dosage Form/Route: SOLUTION;INTRAMUSCULAR, INTRAVENOUS
Application: A040347 | Product #002
Applicant: HIKMA PHARMACEUTICALS USA INC
Approved: Apr 25, 2000 | RLD: No | RS: No | Type: DISCN